FAERS Safety Report 15507814 (Version 9)
Quarter: 2019Q1

REPORT INFORMATION
  Report Type: Report from Study
  Country: US (occurrence: US)
  Receive Date: 20181016
  Receipt Date: 20190328
  Transmission Date: 20190417
  Serious: Yes (Hospitalization, Other)
  Sender: FDA-Public Use
  Company Number: US-MALLINCKRODT-T201803541

PATIENT
  Sex: Female

DRUGS (3)
  1. REPOSITORY CORTICOTROPIN INJECTION [Suspect]
     Active Substance: CORTICOTROPIN
     Dosage: 80 UNITS/1 ML, 3 TIMES PER WEEK TUESDAY/THURSDAY/SATURDAY
     Route: 058
     Dates: start: 20190312
  2. REPOSITORY CORTICOTROPIN INJECTION [Suspect]
     Active Substance: CORTICOTROPIN
     Indication: SYSTEMIC LUPUS ERYTHEMATOSUS
     Dosage: 40 UNITS/0.5 ML, 2 TIMES PER WEEK TUESDAY/THURSDAY
     Route: 058
     Dates: start: 20180703
  3. REPOSITORY CORTICOTROPIN INJECTION [Suspect]
     Active Substance: CORTICOTROPIN
     Indication: FIBROMYALGIA
     Dosage: 40 UNITS/0.5 ML, 2 TIMES PER WEEK TUESDAY/THURSDAY
     Route: 058
     Dates: end: 2019

REACTIONS (13)
  - Intervertebral disc protrusion [Not Recovered/Not Resolved]
  - Diarrhoea [Unknown]
  - Vomiting [Unknown]
  - Pain [Not Recovered/Not Resolved]
  - Sensitivity to weather change [Unknown]
  - Needle issue [Not Recovered/Not Resolved]
  - Systemic inflammatory response syndrome [Not Recovered/Not Resolved]
  - Nervousness [Unknown]
  - Injection site pain [Not Recovered/Not Resolved]
  - Underdose [Not Recovered/Not Resolved]
  - Knee deformity [Unknown]
  - Knee operation [Recovering/Resolving]
  - Nausea [Unknown]

NARRATIVE: CASE EVENT DATE: 2018
